FAERS Safety Report 23945364 (Version 1)
Quarter: 2024Q2

REPORT INFORMATION
  Report Type: Spontaneous
  Country: IT (occurrence: IT)
  Receive Date: 20240606
  Receipt Date: 20240606
  Transmission Date: 20240716
  Serious: Yes (Other)
  Sender: FDA-Public Use
  Company Number: IT-AMGEN-ITASP2024107494

PATIENT

DRUGS (2)
  1. PROLIA [Suspect]
     Active Substance: DENOSUMAB
     Indication: Osteoporosis postmenopausal
     Dosage: UNK
     Route: 065
  2. ROMOSOZUMAB [Concomitant]
     Active Substance: ROMOSOZUMAB
     Indication: Osteoporosis postmenopausal
     Dosage: UNK
     Route: 065

REACTIONS (2)
  - Spinal fracture [Unknown]
  - Therapeutic product effect incomplete [Unknown]
